FAERS Safety Report 9135296 (Version 1)
Quarter: 2013Q1

REPORT INFORMATION
  Report Type: Spontaneous
  Country: US (occurrence: US)
  Receive Date: 20130304
  Receipt Date: 20130304
  Transmission Date: 20140127
  Serious: No
  Sender: FDA-Public Use
  Company Number: US-ENDO PHARMACEUTICALS INC.-ENDC20110071

PATIENT
  Sex: Male

DRUGS (1)
  1. ENDOCET [Suspect]
     Indication: PAIN
     Dosage: 10/325 MG
     Route: 048
     Dates: start: 201105

REACTIONS (2)
  - Incorrect dose administered [Unknown]
  - Drug ineffective [Unknown]
